FAERS Safety Report 11253144 (Version 2)
Quarter: 2015Q3

REPORT INFORMATION
  Report Type: Report from Study
  Country: US (occurrence: US)
  Receive Date: 20150709
  Receipt Date: 20150723
  Transmission Date: 20151125
  Serious: Yes (Death, Disabling)
  Sender: FDA-Public Use
  Company Number: PHEH2015US013021

PATIENT
  Age: 72 Year
  Sex: Male

DRUGS (3)
  1. DICLOFENAC POTASSIUM. [Concomitant]
     Active Substance: DICLOFENAC POTASSIUM
     Indication: PRODUCT USED FOR UNKNOWN INDICATION
     Dosage: 50 MG
     Route: 065
  2. COLCRYS [Concomitant]
     Active Substance: COLCHICINE
     Indication: PRODUCT USED FOR UNKNOWN INDICATION
     Dosage: 0.6 MG
     Route: 065
  3. EXJADE [Suspect]
     Active Substance: DEFERASIROX
     Indication: IRON METABOLISM DISORDER
     Dosage: 5 DF, QD
     Route: 065
     Dates: start: 20110221

REACTIONS (3)
  - Cellulitis [Fatal]
  - Aplastic anaemia [Fatal]
  - Bone marrow failure [Fatal]

NARRATIVE: CASE EVENT DATE: 20150513
